FAERS Safety Report 9553232 (Version 1)
Quarter: 2013Q3

REPORT INFORMATION
  Report Type: Spontaneous
  Country: US (occurrence: None)
  Receive Date: 20130924
  Receipt Date: 20130924
  Transmission Date: 20140515
  Serious: Yes (Other)
  Sender: FDA-Public Use
  Company Number: None

PATIENT
  Age: 64 Year
  Sex: Female
  Weight: 56.7 kg

DRUGS (11)
  1. PROLIA [Suspect]
     Indication: OSTEOPENIA
     Dates: start: 20120326, end: 20120917
  2. CALCIUM CARBONATE [Concomitant]
  3. ASPIRIN [Concomitant]
  4. ATORVASTAIN [Concomitant]
  5. CHLOECALCIFEROL [Concomitant]
  6. EXEMESTANE [Concomitant]
  7. GLUCOSE BLOOD STRIPS [Concomitant]
  8. LANCETS [Concomitant]
  9. METFORMIN [Concomitant]
  10. ONGLYZA [Concomitant]
  11. PYRIDOXINE [Concomitant]

REACTIONS (2)
  - Ulnar neuritis [None]
  - Osteonecrosis [None]
